FAERS Safety Report 20669016 (Version 3)
Quarter: 2022Q2

REPORT INFORMATION
  Report Type: Spontaneous
  Country: US (occurrence: None)
  Receive Date: 20220404
  Receipt Date: 20220520
  Transmission Date: 20220721
  Serious: No
  Sender: FDA-Public Use
  Company Number: 2022A113522

PATIENT
  Age: 24440 Day
  Sex: Male
  Weight: 97.5 kg

DRUGS (1)
  1. BYDUREON BCISE [Suspect]
     Active Substance: EXENATIDE
     Indication: Diabetes mellitus
     Route: 058
     Dates: start: 2018

REACTIONS (3)
  - Prostatic disorder [Unknown]
  - Device delivery system issue [Unknown]
  - Device leakage [Unknown]
